FAERS Safety Report 20042926 (Version 2)
Quarter: 2021Q4

REPORT INFORMATION
  Report Type: Spontaneous
  Country: US (occurrence: US)
  Receive Date: 20211108
  Receipt Date: 20211117
  Transmission Date: 20220303
  Serious: Yes (Other)
  Sender: FDA-Public Use
  Company Number: ALC2021US006026

PATIENT
  Sex: Male

DRUGS (1)
  1. SIMBRINZA [Suspect]
     Active Substance: BRIMONIDINE TARTRATE\BRINZOLAMIDE
     Indication: Intraocular pressure increased
     Dosage: UNK
     Route: 065
     Dates: start: 201808

REACTIONS (4)
  - Diabetes mellitus [Unknown]
  - Hypoacusis [Unknown]
  - Cardiac disorder [Unknown]
  - Drug ineffective [Unknown]
